FAERS Safety Report 10017859 (Version 2)
Quarter: 2014Q1

REPORT INFORMATION
  Report Type: Spontaneous
  Country: US (occurrence: US)
  Receive Date: 20140318
  Receipt Date: 20140318
  Transmission Date: 20141002
  Serious: No
  Sender: FDA-Public Use
  Company Number: US-BRISTOL-MYERS SQUIBB COMPANY-18852913

PATIENT
  Age: 67 Year
  Sex: Female

DRUGS (1)
  1. ERBITUX [Suspect]
     Indication: COLON CANCER STAGE IV
     Dosage: RECENT DOSE 13MAY13

REACTIONS (6)
  - Skin disorder [Unknown]
  - Acne [Unknown]
  - Haemoptysis [Unknown]
  - Dry eye [Unknown]
  - Dry skin [Unknown]
  - Macule [Unknown]
